FAERS Safety Report 15227565 (Version 5)
Quarter: 2019Q1

REPORT INFORMATION
  Report Type: Report from Study
  Country: US (occurrence: US)
  Receive Date: 20180801
  Receipt Date: 20190227
  Transmission Date: 20190417
  Serious: Yes (Disabling)
  Sender: FDA-Public Use
  Company Number: PHEH2018US031403

PATIENT
  Age: 59 Year
  Sex: Male
  Weight: 121.7 kg

DRUGS (2)
  1. ENTRESTO [Suspect]
     Active Substance: SACUBITRIL\VALSARTAN
     Indication: CARDIOMYOPATHY
  2. ENTRESTO [Suspect]
     Active Substance: SACUBITRIL\VALSARTAN
     Indication: CARDIAC FAILURE CONGESTIVE
     Dosage: UNK UNK, BID
     Route: 048
     Dates: start: 20170111

REACTIONS (12)
  - Polyneuropathy [Unknown]
  - Limb discomfort [Unknown]
  - Peripheral swelling [Unknown]
  - Neuropathy peripheral [Not Recovered/Not Resolved]
  - Pain in extremity [Unknown]
  - Poor peripheral circulation [Unknown]
  - Sleep apnoea syndrome [Unknown]
  - Dysaesthesia [Unknown]
  - Hypoaesthesia [Unknown]
  - Pain [Unknown]
  - Gait inability [Unknown]
  - Paraesthesia [Unknown]

NARRATIVE: CASE EVENT DATE: 201805
